FAERS Safety Report 17534729 (Version 1)
Quarter: 2020Q1

REPORT INFORMATION
  Report Type: Report from Study
  Country: CA (occurrence: CA)
  Receive Date: 20200312
  Receipt Date: 20200312
  Transmission Date: 20200409
  Serious: Yes (Hospitalization)
  Sender: FDA-Public Use
  Company Number: CA-JNJFOC-20190929306

PATIENT
  Age: 61 Year
  Sex: Female
  Weight: 45 kg

DRUGS (7)
  1. STELARA [Suspect]
     Active Substance: USTEKINUMAB
     Indication: CROHN^S DISEASE
     Route: 058
     Dates: start: 20170802
  2. PANTOLOC                           /01263201/ [Concomitant]
     Active Substance: PANTOPRAZOLE SODIUM
     Route: 048
  3. BUSCOPAN [Concomitant]
     Active Substance: BUTYLSCOPOLAMINE BROMIDE
     Route: 048
  4. VITAMIN B12 [Concomitant]
     Active Substance: CYANOCOBALAMIN
  5. ACTONEL [Concomitant]
     Active Substance: RISEDRONATE SODIUM
     Dosage: 1 TABLET EVERY ONE WEEK
     Route: 048
  6. PROBIOTICS                         /07325001/ [Concomitant]
     Active Substance: BIFIDOBACTERIUM LONGUM\LACTOBACILLUS ACIDOPHILUS\LACTOBACILLUS RHAMNOSUS
     Dosage: 2 TABLETS TWICE A DAY
     Route: 048
  7. PROLIA [Concomitant]
     Active Substance: DENOSUMAB
     Route: 030

REACTIONS (4)
  - Abscess [Recovering/Resolving]
  - Diarrhoea [Not Recovered/Not Resolved]
  - Nasopharyngitis [Recovered/Resolved]
  - Pain [Unknown]

NARRATIVE: CASE EVENT DATE: 20200128
